FAERS Safety Report 4616569-8 (Version None)
Quarter: 2005Q1

REPORT INFORMATION
  Report Type: 
  Country: None (occurrence: None)
  Receive Date: 20050318
  Receipt Date: 20050302
  Transmission Date: 20050727
  Serious: Yes (Death)
  Sender: FDA-Public Use
  Company Number: L04-USA-07403-36

PATIENT
  Age: 68 Year
  Sex: Male

DRUGS (1)
  1. THEOPHYLLINE [Suspect]

REACTIONS (12)
  - ACCIDENTAL OVERDOSE [None]
  - ACUTE MYOCARDIAL INFARCTION [None]
  - ANAEMIA [None]
  - CARDIAC FAILURE CONGESTIVE [None]
  - CHRONIC OBSTRUCTIVE PULMONARY DISEASE [None]
  - DYSPNOEA [None]
  - GENERAL PHYSICAL HEALTH DETERIORATION [None]
  - HYPOTENSION [None]
  - MEDICATION ERROR [None]
  - METABOLIC ACIDOSIS [None]
  - SINUS TACHYCARDIA [None]
  - TROPONIN INCREASED [None]
